FAERS Safety Report 4647436-1 (Version None)
Quarter: 2005Q2

REPORT INFORMATION
  Report Type: 
  Country: None (occurrence: None)
  Receive Date: 20050428
  Receipt Date: 20050418
  Transmission Date: 20051028
  Serious: Yes (Hospitalization)
  Sender: FDA-Public Use
  Company Number: US-JNJFOC-20050404311

PATIENT
  Age: 48 Year
  Sex: Female
  Weight: 77.11 kg

DRUGS (5)
  1. DURAGESIC [Suspect]
     Route: 062
     Dates: start: 20000101
  2. OXYCODONE [Concomitant]
     Indication: BACK PAIN
  3. BACLOFEN [Concomitant]
  4. IRON [Concomitant]
     Route: 049
  5. NEXIUM [Concomitant]

REACTIONS (5)
  - DEHYDRATION [None]
  - DIARRHOEA [None]
  - DRUG WITHDRAWAL SYNDROME [None]
  - VOCAL CORD INFLAMMATION [None]
  - VOMITING [None]
